FAERS Safety Report 9168753 (Version 2)
Quarter: 2013Q2

REPORT INFORMATION
  Report Type: Spontaneous
  Country: GB (occurrence: None)
  Receive Date: 20130308
  Receipt Date: 20130621
  Transmission Date: 20140414
  Serious: Yes (Other)
  Sender: FDA-Public Use
  Company Number: THQ2013A01570

PATIENT
  Age: 68 Year
  Sex: Female

DRUGS (2)
  1. LANSOPRAZOLE [Suspect]
     Indication: GASTROOESOPHAGEAL REFLUX DISEASE
  2. LEVOTHYROXINE [Suspect]

REACTIONS (8)
  - Oral neoplasm [None]
  - Throat lesion [None]
  - Mucosal inflammation [None]
  - Rash pustular [None]
  - Rash generalised [None]
  - Aphagia [None]
  - Dysphonia [None]
  - Fatigue [None]
